FAERS Safety Report 17576741 (Version 4)
Quarter: 2021Q1

REPORT INFORMATION
  Report Type: Other
  Country: US (occurrence: US)
  Receive Date: 20200324
  Receipt Date: 20210320
  Transmission Date: 20210419
  Serious: No
  Sender: FDA-Public Use
  Company Number: US-ACORDA-ACO_164109_2020

PATIENT
  Sex: Male

DRUGS (2)
  1. INBRIJA [Suspect]
     Active Substance: LEVODOPA
     Indication: PARKINSON^S DISEASE
     Dosage: 2 CAPSULES, PRN (NOT TO EXCEED 5 DOSES PER DAY)
  2. INBRIJA [Suspect]
     Active Substance: LEVODOPA
     Dosage: 84 MILLIGRAM, BID
     Dates: start: 20200228

REACTIONS (3)
  - Therapeutic response unexpected [Unknown]
  - Cyst [Recovered/Resolved]
  - Device use issue [Unknown]
